FAERS Safety Report 13152208 (Version 4)
Quarter: 2017Q1

REPORT INFORMATION
  Report Type: Report from Study
  Country: RO (occurrence: RO)
  Receive Date: 20170125
  Receipt Date: 20170314
  Transmission Date: 20170428
  Serious: Yes (Life-Threatening, Hospitalization, Other)
  Sender: FDA-Public Use
  Company Number: PHHY2017RO010353

PATIENT
  Age: 14 Year
  Sex: Male
  Weight: 75.5 kg

DRUGS (4)
  1. CYTOSAR [Concomitant]
     Active Substance: CYTARABINE
     Indication: PRODUCT USED FOR UNKNOWN INDICATION
     Dosage: 3840 MG, 3-HOUR INFUSION EVERY 12 HOURS (4 DOSES ON 07 AND 08 JAN 2017)
     Route: 065
     Dates: start: 20170107, end: 20170108
  2. METHOTREXATE. [Concomitant]
     Active Substance: METHOTREXATE
     Indication: PRODUCT USED FOR UNKNOWN INDICATION
     Dosage: 2000 MG, 24 HOURS INFUSION ON 05 JAN 2017
     Route: 065
     Dates: start: 20170105, end: 20170105
  3. GLIVEC [Suspect]
     Active Substance: IMATINIB MESYLATE
     Indication: ACUTE LYMPHOCYTIC LEUKAEMIA
     Dosage: 319.14 OT, QD
     Route: 048
     Dates: start: 20161027, end: 20170116
  4. GLIVEC [Suspect]
     Active Substance: IMATINIB MESYLATE
     Dosage: 600 MG, QD
     Route: 048
     Dates: start: 20170127

REACTIONS (7)
  - Aspartate aminotransferase increased [Unknown]
  - Neutropenia [Recovered/Resolved]
  - Leukopenia [Recovered/Resolved]
  - Anaemia [Unknown]
  - Thrombocytopenia [Recovering/Resolving]
  - Upper gastrointestinal haemorrhage [Unknown]
  - Alanine aminotransferase increased [Unknown]

NARRATIVE: CASE EVENT DATE: 20170103
